FAERS Safety Report 18579811 (Version 1)
Quarter: 2020Q4

REPORT INFORMATION
  Report Type: Spontaneous
  Country: CA (occurrence: CA)
  Receive Date: 20201204
  Receipt Date: 20201204
  Transmission Date: 20210114
  Serious: Yes (Life-Threatening, Hospitalization, Other)
  Sender: FDA-Public Use
  Company Number: CA-SCIEGEN-2020SCILIT00447

PATIENT
  Age: 57 Year
  Sex: Female

DRUGS (3)
  1. IRBESARTAN TABLETS [Suspect]
     Active Substance: IRBESARTAN
     Indication: PRODUCT USED FOR UNKNOWN INDICATION
     Dosage: OCCUPATIONAL EXPOSURE
     Route: 065
  2. ATENOLOL. [Concomitant]
     Active Substance: ATENOLOL
     Indication: PRODUCT USED FOR UNKNOWN INDICATION
     Route: 065
  3. EPINEPHRINE. [Interacting]
     Active Substance: EPINEPHRINE
     Indication: ANAPHYLACTIC REACTION
     Route: 065

REACTIONS (7)
  - Anaphylactic reaction [Recovered/Resolved]
  - Rash [Unknown]
  - Accidental exposure to product [Unknown]
  - Stridor [Unknown]
  - Lip swelling [Unknown]
  - Flushing [Unknown]
  - Respiratory distress [Unknown]
